FAERS Safety Report 12187112 (Version 1)
Quarter: 2016Q1

REPORT INFORMATION
  Report Type: Spontaneous
  Country: US (occurrence: None)
  Receive Date: 20160316
  Receipt Date: 20160316
  Transmission Date: 20160526
  Serious: Yes (Hospitalization)
  Sender: FDA-Public Use
  Company Number: None

PATIENT
  Age: 59 Year
  Sex: Male
  Weight: 69.26 kg

DRUGS (19)
  1. TREPROSTIN [Concomitant]
  2. XANAX [Concomitant]
     Active Substance: ALPRAZOLAM
  3. THIAMINE. [Concomitant]
     Active Substance: THIAMINE
  4. TRAMADOL. [Concomitant]
     Active Substance: TRAMADOL
  5. ZINC [Concomitant]
     Active Substance: ZINC\ZINC CHLORIDE
  6. TRAZODONE [Concomitant]
     Active Substance: TRAZODONE HYDROCHLORIDE
  7. LACTULOSE. [Concomitant]
     Active Substance: LACTULOSE
  8. RIBAVIRIN 600MG [Suspect]
     Active Substance: RIBAVIRIN
     Indication: HEPATITIS C
     Route: 048
     Dates: start: 20140904, end: 20141224
  9. SILDENAFIL. [Concomitant]
     Active Substance: SILDENAFIL
  10. AMILORIDE [Concomitant]
     Active Substance: AMILORIDE
  11. MULTI VITAMIN [Concomitant]
     Active Substance: VITAMINS
  12. OXYCODONE [Concomitant]
     Active Substance: OXYCODONE
  13. REQUIP [Concomitant]
     Active Substance: ROPINIROLE HYDROCHLORIDE
  14. SOFOSBUVIR 400MG [Suspect]
     Active Substance: SOFOSBUVIR
     Indication: HEPATITIS C
     Route: 048
     Dates: start: 20140904, end: 20141224
  15. LASIX [Concomitant]
     Active Substance: FUROSEMIDE
  16. RIFAXIMIN [Concomitant]
     Active Substance: RIFAXIMIN
  17. BUPROPION. [Concomitant]
     Active Substance: BUPROPION
  18. NEXIUM [Concomitant]
     Active Substance: ESOMEPRAZOLE MAGNESIUM
  19. ZOFRAN [Concomitant]
     Active Substance: ONDANSETRON HYDROCHLORIDE

REACTIONS (2)
  - Abdominal pain [None]
  - Iron deficiency anaemia [None]

NARRATIVE: CASE EVENT DATE: 20141120
